FAERS Safety Report 10429340 (Version 1)
Quarter: 2014Q3

REPORT INFORMATION
  Report Type: Spontaneous
  Country: US (occurrence: None)
  Receive Date: 20140725
  Receipt Date: 20140725
  Transmission Date: 20150326
  Serious: Yes (Other)
  Sender: FDA-Public Use
  Company Number: 163-50794-13103098

PATIENT
  Age: 84 Year
  Sex: Female

DRUGS (12)
  1. LEVOTHYROXINE [Concomitant]
     Active Substance: LEVOTHYROXINE
  2. SYNTHROID [Concomitant]
     Active Substance: LEVOTHYROXINE SODIUM
  3. ZOFRAN (ONDANSETRON HYDROCHLORIDE) [Concomitant]
  4. PREDNISOLONE ACETATE. [Concomitant]
     Active Substance: PREDNISOLONE ACETATE
  5. VIDAZA [Suspect]
     Active Substance: AZACITIDINE
     Indication: MYELODYSPLASTIC SYNDROME
     Dosage: 28 IN 28 D
     Route: 058
     Dates: start: 201302, end: 20131009
  6. GENERLAC (LACTULOSE) [Concomitant]
  7. ASPIRIN (ACETYLSALICYLIC ACID) [Concomitant]
     Active Substance: ASPIRIN
  8. REFRESH TEARS (CARMELLOSE SODIUM) [Concomitant]
  9. PROCHLORPERAZINE. [Concomitant]
     Active Substance: PROCHLORPERAZINE
  10. TUSSIN (DEXTROMETHORPHAN HYDROBROMIDE) [Concomitant]
  11. ATORVASTATIN [Concomitant]
     Active Substance: ATORVASTATIN
  12. LIPITOR [Concomitant]
     Active Substance: ATORVASTATIN CALCIUM

REACTIONS (3)
  - Neutrophil count decreased [None]
  - White blood cell count decreased [None]
  - Eye infection [None]

NARRATIVE: CASE EVENT DATE: 2013
